FAERS Safety Report 5817075-5 (Version None)
Quarter: 2008Q3

REPORT INFORMATION
  Report Type: 
  Country: None (occurrence: None)
  Receive Date: 20080722
  Receipt Date: 20080715
  Transmission Date: 20090109
  Serious: Yes (Hospitalization)
  Sender: FDA-Public Use
  Company Number: JP-AMGEN-US265386

PATIENT
  Sex: Male
  Weight: 64 kg

DRUGS (15)
  1. ENBREL [Suspect]
     Indication: RHEUMATOID ARTHRITIS
     Route: 058
     Dates: start: 20070625, end: 20080128
  2. FLUTIDE DISKUS [Concomitant]
     Indication: ASTHMA
     Route: 055
     Dates: start: 20071126, end: 20071224
  3. PREDNISOLONE [Concomitant]
     Indication: RHEUMATOID ARTHRITIS
     Route: 048
     Dates: start: 20060908, end: 20070708
  4. BISOLVON [Concomitant]
     Indication: ASTHMA
     Route: 048
     Dates: start: 20070817, end: 20071214
  5. PRANLUKAST [Concomitant]
     Indication: ASTHMA
     Route: 048
     Dates: start: 20071116, end: 20071214
  6. RISEDRONATE SODIUM [Concomitant]
     Indication: OSTEOPOROSIS
     Route: 048
     Dates: start: 20070709, end: 20070817
  7. BREDININ [Concomitant]
     Indication: RHEUMATOID ARTHRITIS
     Route: 048
     Dates: start: 20060908, end: 20070708
  8. VOLTAREN [Concomitant]
     Indication: RHEUMATOID ARTHRITIS
     Route: 048
     Dates: start: 20060909, end: 20070708
  9. RHEUMATREX [Concomitant]
     Indication: RHEUMATOID ARTHRITIS
     Dosage: THREE 2 MG CAPSULES PER WEEK
     Dates: start: 20060908
  10. RHEUMATREX [Concomitant]
     Dosage: 6 CAPSULES PER WEEK
     Route: 048
     Dates: start: 20060922, end: 20070708
  11. FOLIAMIN [Concomitant]
     Indication: PROPHYLAXIS
     Route: 048
     Dates: start: 20060908, end: 20070708
  12. BONALON [Concomitant]
     Indication: OSTEOPOROSIS
     Route: 048
     Dates: start: 20060922, end: 20070708
  13. CELECOXIB [Concomitant]
     Indication: RHEUMATOID ARTHRITIS
     Route: 048
     Dates: start: 20070709, end: 20070817
  14. THEODUR ^ELAN^ [Concomitant]
     Indication: ASTHMA
     Route: 048
     Dates: start: 20070806, end: 20071116
  15. MEDICON [Concomitant]
     Indication: ASTHMA
     Route: 048
     Dates: start: 20070806, end: 20070916

REACTIONS (3)
  - NEISSERIA INFECTION [None]
  - PNEUMONIA STREPTOCOCCAL [None]
  - PNEUMOTHORAX [None]
